FAERS Safety Report 5125505-X (Version None)
Quarter: 2006Q3

REPORT INFORMATION
  Report Type: 
  Country: None (occurrence: None)
  Receive Date: 20060822
  Receipt Date: 20060702
  Transmission Date: 20061208
  Serious: No
  Sender: FDA-Public Use
  Company Number: PHEH2006US08579

PATIENT
  Age: 59 Year
  Sex: Female

DRUGS (1)
  1. ENABLEX [Suspect]
     Indication: HYPERTONIC BLADDER

REACTIONS (8)
  - CONSTIPATION [None]
  - DRUG INEFFECTIVE [None]
  - DRY MOUTH [None]
  - DYSPEPSIA [None]
  - MICTURITION URGENCY [None]
  - PAIN [None]
  - URINARY INCONTINENCE [None]
  - URINARY TRACT PAIN [None]
